FAERS Safety Report 8823482 (Version 1)
Quarter: 2012Q4

REPORT INFORMATION
  Report Type: Report from Study
  Country: JP (occurrence: JP)
  Receive Date: 20121003
  Receipt Date: 20121003
  Transmission Date: 20130627
  Serious: Yes (Life-Threatening, Hospitalization, Other)
  Sender: FDA-Public Use
  Company Number: JP-009507513-2012SP024173

PATIENT
  Age: 23 Year
  Sex: Male
  Weight: 88 kg

DRUGS (10)
  1. PEGINTRON [Suspect]
     Indication: HEPATITIS C
     Dosage: 1.5 Microgram per kilogram, qw
     Route: 058
     Dates: start: 20120302, end: 20120322
  2. PEGINTRON [Suspect]
     Dosage: 0.75 Microgram per kilogram, qw
     Route: 058
     Dates: start: 20120323
  3. REBETOL [Suspect]
     Indication: HEPATITIS C
     Dosage: 1000 mg, QD
     Route: 048
     Dates: start: 20120302
  4. TELAVIC [Suspect]
     Indication: HEPATITIS C
     Dosage: 2250 mg, QD
     Route: 048
     Dates: start: 20120302, end: 20120524
  5. SELBEX [Concomitant]
     Indication: RHEUMATOID ARTHRITIS
     Dosage: 150 mg, qd
     Route: 048
     Dates: start: 20110121
  6. LOBU [Concomitant]
     Indication: PYREXIA
     Dosage: 180 mg, qd
     Route: 048
     Dates: start: 20120303
  7. TAKEPRON [Concomitant]
     Indication: PROPHYLAXIS
     Dosage: 30 mg, qd
     Route: 048
     Dates: start: 20120303
  8. PRIMPERAN [Concomitant]
     Indication: VOMITING
     Dosage: 16.5 mg, qd
     Route: 048
     Dates: start: 20120305
  9. DIPHENHYDRAMINE SALICYLATE (+) DYPHYLLINE [Concomitant]
     Indication: VOMITING
     Dosage: 3 DF, qd
     Route: 048
     Dates: start: 20120315
  10. AZULFIDINE [Concomitant]
     Indication: RHEUMATOID ARTHRITIS
     Dosage: 1000 mg, qd
     Route: 048
     Dates: start: 20110121

REACTIONS (3)
  - Neutrophil count decreased [Recovering/Resolving]
  - Depression [Recovering/Resolving]
  - White blood cell count decreased [Recovered/Resolved]
